FAERS Safety Report 22173226 (Version 1)
Quarter: 2023Q2

REPORT INFORMATION
  Report Type: Spontaneous
  Country: US (occurrence: US)
  Receive Date: 20230404
  Receipt Date: 20230404
  Transmission Date: 20230721
  Serious: No
  Sender: FDA-Public Use
  Company Number: US-TEVA-2023-US-2868734

PATIENT
  Age: 75 Year
  Sex: Female

DRUGS (1)
  1. CLONAZEPAM [Suspect]
     Active Substance: CLONAZEPAM
     Indication: Anxiety
     Dosage: SPLIT PILL IN HALF WITH HALF TAKEN IN MORNING AND THE OTHER HALF IN EVENING BEFORE BED
     Route: 065

REACTIONS (9)
  - Therapeutic product effect incomplete [Unknown]
  - Headache [Unknown]
  - Palpitations [Unknown]
  - Tinnitus [Unknown]
  - Product substitution issue [Unknown]
  - Insomnia [Unknown]
  - Feeling abnormal [Unknown]
  - Brain fog [Unknown]
  - Memory impairment [Unknown]
